FAERS Safety Report 9447908 (Version 2)
Quarter: 2013Q4

REPORT INFORMATION
  Report Type: Spontaneous
  Country: GB (occurrence: None)
  Receive Date: 20130806
  Receipt Date: 20131115
  Transmission Date: 20140711
  Serious: Yes (Other)
  Sender: FDA-Public Use
  Company Number: GB-DEXPHARM-20130469

PATIENT
  Age: 70 Year
  Sex: Male
  Weight: 83.5 kg

DRUGS (10)
  1. WOCKHARDT UK NAPROXEN [Suspect]
     Indication: OSTEOARTHRITIS
     Dosage: TOOK HALF A TABLET ON FIRST COUPLE OF DAYS.
     Dates: start: 20130702, end: 20130705
  2. CLOPIDOGREL [Concomitant]
  3. COLESEVELAM [Concomitant]
  4. DILTIAZEM [Concomitant]
  5. EPLERENONE [Concomitant]
  6. JANUVIA [Concomitant]
  7. OMACOR [Concomitant]
  8. ROSUVASTATIN [Concomitant]
  9. TESTOGEL [Concomitant]
  10. OMEPRAZOLE [Suspect]
     Indication: PROPHYLAXIS AGAINST GASTROINTESTINAL ULCER
     Dosage: CUMULATIVE DOSE: 40.0 MG MILLIGRAM(S)
     Dates: start: 20130702, end: 20130706

REACTIONS (8)
  - Malaise [None]
  - Feeling abnormal [None]
  - Abdominal pain [None]
  - Non-cardiac chest pain [None]
  - Discomfort [None]
  - Activities of daily living impaired [None]
  - Inflammation [None]
  - Abdominal discomfort [None]
